FAERS Safety Report 4526913-8 (Version None)
Quarter: 2004Q4

REPORT INFORMATION
  Report Type: 
  Country: None (occurrence: None)
  Receive Date: 20041116
  Receipt Date: 20041013
  Transmission Date: 20050328
  Serious: No
  Sender: FDA-Public Use
  Company Number: 200410815BCA

PATIENT
  Age: 50 Year
  Sex: Female
  Weight: 55.5 kg

DRUGS (2)
  1. GAMIMUNE N 10% [Suspect]
     Indication: HYPOGAMMAGLOBULINAEMIA
     Dosage: 40 G, Q3WK, INTRAVENOUS
     Route: 042
  2. GLRAVOL [Concomitant]

REACTIONS (6)
  - APHONIA [None]
  - DYSPNOEA [None]
  - HEADACHE [None]
  - INFLUENZA LIKE ILLNESS [None]
  - NAUSEA [None]
  - VOMITING [None]
